FAERS Safety Report 7711657-1 (Version None)
Quarter: 2011Q3

REPORT INFORMATION
  Report Type: 
  Country: None (occurrence: None)
  Receive Date: 20110826
  Receipt Date: 20110711
  Transmission Date: 20111222
  Serious: No
  Sender: FDA-Public Use
  Company Number: US-BRISTOL-MYERS SQUIBB COMPANY-15894470

PATIENT
  Age: 86 Year
  Sex: Male

DRUGS (3)
  1. THYROID TAB [Concomitant]
  2. ONGLYZA [Suspect]
     Indication: HYPERTENSION
     Dosage: LAST REFILL:02JUL11
  3. BLOOD PRESSURE MEDICATION [Concomitant]

REACTIONS (1)
  - BLOOD GLUCOSE INCREASED [None]
